FAERS Safety Report 10246571 (Version 1)
Quarter: 2014Q1

REPORT INFORMATION
  Report Type: Spontaneous
  Country: US (occurrence: None)
  Receive Date: 20140306
  Receipt Date: 20140306
  Transmission Date: 20141002
  Serious: Yes (Other)
  Sender: FDA-Public Use
  Company Number: 163-21880-13082828

PATIENT
  Age: 68 Year
  Sex: Male
  Weight: 83 kg

DRUGS (15)
  1. REVLIMID (LENALIDOMIDE) (25 MILLIGRAM, CAPSULES) [Suspect]
     Indication: AMYLOIDOSIS
     Route: 048
     Dates: start: 201101
  2. LOSARTAN POTASSIUM (TABLETS) [Concomitant]
  3. SIMVASTATIN (TABLETS) [Concomitant]
  4. VITAMIN C (ASCORBIC ACID) (TABLETS) [Concomitant]
  5. ASPIRIN (ACETYLSALICYLIC ACID) (TABLETS) [Concomitant]
  6. VELCADE (BORTEZOMIB) (TABLETS) [Concomitant]
  7. ACYCLOVIR (ACICLVIR) (UNKNOWN) [Concomitant]
  8. ALLOPURINOL (UNKNOWN) [Concomitant]
  9. CALCIUM +D (OS-CAL) (UNKNOWN) [Concomitant]
  10. DECADRON (DEXAMETHASONE) (TABLETS) [Concomitant]
  11. DILTIAZEM [Concomitant]
  12. LASIX (FUROSEMIDE) (UNKNOWN) [Concomitant]
  13. LISINOPRIL (UNKNOWN) [Concomitant]
  14. LOVASTATIN (UNKNOWN) [Concomitant]
  15. PRILOSEC (OMEPRAZOLE) (UNKNOWN) [Concomitant]

REACTIONS (1)
  - Deep vein thrombosis [None]
